FAERS Safety Report 9726366 (Version 1)
Quarter: 2013Q4

REPORT INFORMATION
  Report Type: Spontaneous
  Country: AU (occurrence: None)
  Receive Date: 20131129
  Receipt Date: 20131129
  Transmission Date: 20140711
  Serious: Yes (Disabling, Other)
  Sender: FDA-Public Use
  Company Number: DSU-2013-05143

PATIENT
  Age: 73 Year
  Sex: Male
  Weight: 59 kg

DRUGS (1)
  1. OLMETEC [Suspect]
     Indication: ESSENTIAL HYPERTENSION
     Route: 048
     Dates: start: 20100101, end: 20130807

REACTIONS (5)
  - Diarrhoea [None]
  - Weight decreased [None]
  - Coeliac disease [None]
  - Colitis microscopic [None]
  - Colitis microscopic [None]
